FAERS Safety Report 6190092-4 (Version None)
Quarter: 2009Q2

REPORT INFORMATION
  Report Type: 
  Country: None (occurrence: None)
  Receive Date: 20090514
  Receipt Date: 20090511
  Transmission Date: 20091009
  Serious: Yes (Other)
  Sender: FDA-Public Use
  Company Number: PHHO2005US04648

PATIENT
  Sex: Male
  Weight: 66 kg

DRUGS (2)
  1. CIBADREX T29368+ [Suspect]
     Indication: HYPERTENSION
     Dosage: LEVEL 1
     Route: 048
     Dates: start: 20040316, end: 20050216
  2. CIBADREX T29368+ [Suspect]
     Dosage: OFF STUDY MEDICATION
     Dates: start: 20050216

REACTIONS (1)
  - DIABETES MELLITUS [None]
